FAERS Safety Report 10479761 (Version 2)
Quarter: 2014Q3

REPORT INFORMATION
  Report Type: Report from Study
  Country: US (occurrence: US)
  Receive Date: 20140927
  Receipt Date: 20140927
  Transmission Date: 20150326
  Serious: Yes (Hospitalization, Other)
  Sender: FDA-Public Use
  Company Number: US-ALEXION PHARMACEUTICALS INC-A200800811

PATIENT
  Age: 31 Year
  Sex: Male

DRUGS (1)
  1. SOLIRIS [Suspect]
     Active Substance: ECULIZUMAB
     Indication: PAROXYSMAL NOCTURNAL HAEMOGLOBINURIA
     Dosage: UNK
     Route: 042

REACTIONS (15)
  - Scar [Unknown]
  - Nephritis [Unknown]
  - Pyrexia [Unknown]
  - Dizziness [Not Recovered/Not Resolved]
  - Urinary tract infection [Unknown]
  - White blood cell count decreased [Recovering/Resolving]
  - Chromaturia [Recovering/Resolving]
  - Haemoglobin decreased [Recovering/Resolving]
  - Pollakiuria [Unknown]
  - Platelet count decreased [Recovering/Resolving]
  - Abdominal pain [Recovering/Resolving]
  - Swelling [Unknown]
  - Headache [Not Recovered/Not Resolved]
  - Tenderness [Unknown]
  - Myalgia [Recovered/Resolved]

NARRATIVE: CASE EVENT DATE: 20080304
